FAERS Safety Report 14711199 (Version 2)
Quarter: 2018Q2

REPORT INFORMATION
  Report Type: Report from Study
  Country: BR (occurrence: BR)
  Receive Date: 20180403
  Receipt Date: 20180412
  Transmission Date: 20180711
  Serious: Yes (Hospitalization)
  Sender: FDA-Public Use
  Company Number: PHHY2018BR052943

PATIENT
  Sex: Male
  Weight: 12 kg

DRUGS (1)
  1. OMNITROPE [Suspect]
     Active Substance: SOMATROPIN
     Indication: PRODUCT USED FOR UNKNOWN INDICATION
     Dosage: 0.4 MG, QD
     Route: 058
     Dates: start: 20180309

REACTIONS (2)
  - Urinary tract infection [Recovered/Resolved]
  - Systemic infection [Recovered/Resolved]
